FAERS Safety Report 7978561-5 (Version None)
Quarter: 2011Q4

REPORT INFORMATION
  Report Type: 
  Country: None (occurrence: None)
  Receive Date: 20111214
  Receipt Date: 20111208
  Transmission Date: 20120403
  Serious: Yes (Hospitalization, Other)
  Sender: FDA-Public Use
  Company Number: US-SANOFI-AVENTIS-2011SA006457

PATIENT
  Age: 76 Year
  Sex: Female
  Weight: 77.11 kg

DRUGS (13)
  1. PLAVIX [Suspect]
     Indication: CAROTID ARTERY STENOSIS
     Route: 048
     Dates: start: 20050101, end: 20110105
  2. PRILOSEC [Concomitant]
  3. COLACE [Concomitant]
     Indication: CONSTIPATION
  4. VITAMINS NOS [Concomitant]
  5. PLAVIX [Suspect]
     Indication: THROMBOSIS PROPHYLAXIS
     Route: 048
     Dates: start: 20050101, end: 20110105
  6. CAPOZIDE 25/15 [Concomitant]
  7. LOVENOX [Concomitant]
  8. ASPIRIN [Suspect]
     Indication: CAROTID ARTERY STENOSIS
     Route: 048
     Dates: start: 20050101, end: 20110105
  9. ASPIRIN [Suspect]
  10. CAPOZIDE 25/15 [Concomitant]
     Dosage: 25/15
  11. LORTAB [Concomitant]
     Indication: PAIN
     Dosage: 5/500MG THREE TIMES A DAY AS NEEDED.
  12. ANALGESICS [Concomitant]
     Indication: PAIN
  13. DARVOCET-N 50 [Concomitant]

REACTIONS (7)
  - ACUTE MYOCARDIAL INFARCTION [None]
  - DYSPNOEA [None]
  - ANAEMIA [None]
  - OEDEMA PERIPHERAL [None]
  - CONDITION AGGRAVATED [None]
  - CHEST PAIN [None]
  - ARTERIOVENOUS MALFORMATION [None]
